FAERS Safety Report 10031427 (Version 1)
Quarter: 2014Q1

REPORT INFORMATION
  Report Type: Spontaneous
  Country: US (occurrence: US)
  Receive Date: 20140324
  Receipt Date: 20140324
  Transmission Date: 20141002
  Serious: Yes (Hospitalization, Other)
  Sender: FDA-Public Use
  Company Number: US-ELI_LILLY_AND_COMPANY-US201403005461

PATIENT
  Sex: Male
  Weight: 104.31 kg

DRUGS (16)
  1. CYMBALTA [Suspect]
     Indication: DEPRESSION
     Dosage: 90 MG, EACH MORNING
     Route: 065
     Dates: start: 2010
  2. CYMBALTA [Suspect]
     Indication: FEELING GUILTY
     Dosage: 60 MG, QD
  3. ALBUTEROL [Concomitant]
     Dosage: UNK, PRN
  4. NIFEDIPINE [Concomitant]
     Dosage: 60 MG, QD
  5. METFORMIN [Concomitant]
     Dosage: 1000 MG, QD
  6. CELEBREX [Concomitant]
     Dosage: 1 DF, QD
  7. TAMSULOSIN [Concomitant]
     Dosage: 0.4 MG, QD
  8. ATENOLOL [Concomitant]
     Dosage: 50 MG, QD
  9. BUPROPION [Concomitant]
     Dosage: 1 DF, EACH MORNING
  10. SPIRONOLACTON [Concomitant]
     Dosage: 45 MG, QD
  11. CLOPIDOGREL [Concomitant]
     Dosage: 75 MG, QD
  12. SIMVASTATIN [Concomitant]
     Dosage: 1 DF, QD
  13. LOSARTAN [Concomitant]
     Dosage: 100 MG, BID
  14. ASPIRIN [Concomitant]
     Dosage: 81 DF, QD
  15. FUROSEMIDE [Concomitant]
     Dosage: UNK
     Dates: end: 20140313
  16. POTASSIUM [Concomitant]
     Dosage: UNK
     Dates: end: 20140313

REACTIONS (18)
  - Constipation [Unknown]
  - Fall [Unknown]
  - Loss of consciousness [Unknown]
  - Rash [Unknown]
  - Laceration [Unknown]
  - Dehydration [Unknown]
  - Abdominal pain upper [Unknown]
  - Musculoskeletal stiffness [Unknown]
  - Muscular weakness [Unknown]
  - Muscle twitching [Unknown]
  - Confusional state [Unknown]
  - Excoriation [Unknown]
  - Head injury [Unknown]
  - Haemorrhage [Unknown]
  - Dyspnoea [Unknown]
  - Dry skin [Unknown]
  - Feeling abnormal [Unknown]
  - Hypokinesia [Unknown]
